FAERS Safety Report 18579726 (Version 3)
Quarter: 2024Q4

REPORT INFORMATION
  Report Type: Spontaneous
  Country: BR (occurrence: BR)
  Receive Date: 20201204
  Receipt Date: 20241028
  Transmission Date: 20250114
  Serious: Yes (Other)
  Sender: BAYER HEALTHCARE PHARMACEUTICALS INC.
  Company Number: BR-BAYER-2020-259157

PATIENT
  Age: 0 Year
  Sex: Male
  Weight: 2.94 kg

DRUGS (1)
  1. DIENOGEST\ESTRADIOL VALERATE [Suspect]
     Active Substance: DIENOGEST\ESTRADIOL VALERATE
     Route: 048

REACTIONS (14)
  - Neonatal diabetes mellitus [None]
  - Autism spectrum disorder [None]
  - Cardiac murmur [None]
  - Foetal exposure during pregnancy [None]
  - Speech disorder [None]
  - Dysphonia [None]
  - Speech disorder developmental [None]
  - Ear infection [None]
  - Multiple allergies [None]
  - Anxiety [None]
  - Restlessness [None]
  - Agitation [None]
  - Disturbance in attention [None]
  - Attention deficit hyperactivity disorder [None]

NARRATIVE: CASE EVENT DATE: 20201013
